FAERS Safety Report 15269810 (Version 1)
Quarter: 2018Q3

REPORT INFORMATION
  Report Type: Spontaneous
  Country: US (occurrence: US)
  Receive Date: 20180726
  Receipt Date: 20180726
  Transmission Date: 20181010
  Serious: No
  Sender: FDA-Public Use
  Company Number: None

PATIENT
  Age: 38 Year
  Sex: Female

DRUGS (1)
  1. GENTAMICIN 4?MG/ML FRESENI [Suspect]
     Active Substance: GENTAMICIN
     Indication: LYME DISEASE
     Route: 042
     Dates: start: 20180626, end: 20180707

REACTIONS (2)
  - Condition aggravated [None]
  - Tinnitus [None]

NARRATIVE: CASE EVENT DATE: 20180707
